FAERS Safety Report 15800148 (Version 3)
Quarter: 2019Q1

REPORT INFORMATION
  Report Type: Report from Study
  Country: US (occurrence: US)
  Receive Date: 20190108
  Receipt Date: 20190128
  Transmission Date: 20190417
  Serious: Yes (Death, Hospitalization, Other)
  Sender: FDA-Public Use
  Company Number: US-ACTELION-A-NJ2018-166637

PATIENT
  Age: 79 Year
  Sex: Female
  Weight: 77.98 kg

DRUGS (6)
  1. ADEMPAS [Concomitant]
     Active Substance: RIOCIGUAT
  2. ELIQUIS [Concomitant]
     Active Substance: APIXABAN
  3. UPTRAVI [Suspect]
     Active Substance: SELEXIPAG
     Indication: PULMONARY ARTERIAL HYPERTENSION
     Dosage: 800 MCG, BID
     Route: 048
  4. UPTRAVI [Suspect]
     Active Substance: SELEXIPAG
     Dosage: 600 MCG, BID
     Route: 048
  5. TRACLEER [Suspect]
     Active Substance: BOSENTAN
     Indication: PULMONARY ARTERIAL HYPERTENSION
     Dosage: 32 MG, BID
     Route: 048
  6. OXYGEN. [Concomitant]
     Active Substance: OXYGEN

REACTIONS (11)
  - Epistaxis [Unknown]
  - Condition aggravated [Unknown]
  - Infection [Fatal]
  - Feeling abnormal [Unknown]
  - Dyspnoea [Unknown]
  - Neoplasm malignant [Unknown]
  - Oxygen saturation abnormal [Unknown]
  - Dyspnoea exertional [Unknown]
  - Malaise [Unknown]
  - Fatigue [Unknown]
  - Oxygen saturation decreased [Unknown]

NARRATIVE: CASE EVENT DATE: 2018
